FAERS Safety Report 22210281 (Version 1)
Quarter: 2023Q2

REPORT INFORMATION
  Report Type: Report from Study
  Country: US (occurrence: US)
  Receive Date: 20230414
  Receipt Date: 20230414
  Transmission Date: 20230722
  Serious: Yes (Other)
  Sender: FDA-Public Use
  Company Number: US-ALNYLAM PHARMACEUTICALS, INC.-ALN-2023-001240

PATIENT

DRUGS (2)
  1. GIVLAARI [Suspect]
     Active Substance: GIVOSIRAN SODIUM
     Indication: Porphyria acute
     Dosage: UNK
     Route: 065
     Dates: start: 20201014
  2. GIVLAARI [Suspect]
     Active Substance: GIVOSIRAN SODIUM
     Dosage: 189 MILLIGRAM, MONTHLY
     Route: 058
     Dates: start: 20230411

REACTIONS (6)
  - Seizure [Unknown]
  - Presyncope [Unknown]
  - Product dose omission issue [Unknown]
  - Malaise [Unknown]
  - Stress [Unknown]
  - Illness [Unknown]

NARRATIVE: CASE EVENT DATE: 20230317
